FAERS Safety Report 9620414 (Version 1)
Quarter: 2013Q4

REPORT INFORMATION
  Report Type: Spontaneous
  Country: US (occurrence: US)
  Receive Date: 20131015
  Receipt Date: 20131015
  Transmission Date: 20140711
  Serious: No
  Sender: FDA-Public Use
  Company Number: -SAAVPROD-BMS17316670

PATIENT
  Age: 68 Year
  Sex: Female

DRUGS (2)
  1. AVALIDE TABS 150MG/12.5MG [Suspect]
     Indication: BLOOD PRESSURE
     Dosage: 1DF=300MG/12.5MG.ONGOING
     Dates: start: 201301
  2. METFORMIN [Concomitant]

REACTIONS (2)
  - Pruritus [Unknown]
  - Expired drug administered [Unknown]
